FAERS Safety Report 10032625 (Version 1)
Quarter: 2014Q1

REPORT INFORMATION
  Report Type: Spontaneous
  Country: US (occurrence: US)
  Receive Date: 20140324
  Receipt Date: 20140324
  Transmission Date: 20141002
  Serious: Yes (Other)
  Sender: FDA-Public Use
  Company Number: US-SA-2014SA034157

PATIENT
  Sex: Female

DRUGS (1)
  1. AUBAGIO [Suspect]
     Indication: MULTIPLE SCLEROSIS
     Dosage: STRENGTH: 14MG
     Route: 048
     Dates: start: 20130704, end: 20130708

REACTIONS (2)
  - Diarrhoea haemorrhagic [Unknown]
  - Diarrhoea [Unknown]
